FAERS Safety Report 4490180-4 (Version None)
Quarter: 2004Q4

REPORT INFORMATION
  Report Type: 
  Country: None (occurrence: None)
  Receive Date: 20041027
  Receipt Date: 20041014
  Transmission Date: 20050328
  Serious: Yes (Hospitalization, Other)
  Sender: FDA-Public Use
  Company Number: 2004078559

PATIENT
  Age: 57 Year
  Sex: Male
  Weight: 70.6 kg

DRUGS (5)
  1. VFEND [Suspect]
     Indication: CEREBRAL ASPERGILLOSIS
     Dosage: 400 MG (200 MG, 2 IN 1 D), ORAL
     Route: 048
     Dates: start: 20040601
  2. TENOFOVIR (TENOFOVIR) [Suspect]
     Indication: HIV TEST POSITIVE
     Dosage: ORAL
     Route: 048
  3. ABACAVIR (ABACAVIR) [Suspect]
     Indication: HIV TEST POSITIVE
  4. METHADONE HCL [Suspect]
     Indication: ILL-DEFINED DISORDER
  5. NEVIRAPINE (NEVIRAPINE) [Suspect]
     Indication: HIV TEST POSITIVE

REACTIONS (4)
  - DIZZINESS [None]
  - DRUG INTERACTION [None]
  - DYSPNOEA [None]
  - TORSADE DE POINTES [None]
